FAERS Safety Report 22395197 (Version 1)
Quarter: 2023Q2

REPORT INFORMATION
  Report Type: Spontaneous
  Country: US (occurrence: US)
  Receive Date: 20230601
  Receipt Date: 20230601
  Transmission Date: 20230721
  Serious: No
  Sender: FDA-Public Use
  Company Number: US-APIL-2314412US

PATIENT
  Sex: Male

DRUGS (2)
  1. SILODOSIN [Suspect]
     Active Substance: SILODOSIN
     Indication: Product used for unknown indication
     Dosage: UNK
  2. CRESTOR [Suspect]
     Active Substance: ROSUVASTATIN CALCIUM
     Indication: Product used for unknown indication
     Dosage: UNK

REACTIONS (9)
  - Allergic reaction to excipient [Unknown]
  - Arthralgia [Unknown]
  - Myalgia [Unknown]
  - Fatigue [Unknown]
  - Irritability [Unknown]
  - Feeling abnormal [Unknown]
  - Brain fog [Unknown]
  - Hypersensitivity [Unknown]
  - Urticaria [Unknown]
